FAERS Safety Report 5486005-0 (Version None)
Quarter: 2007Q4

REPORT INFORMATION
  Report Type: 
  Country: None (occurrence: None)
  Receive Date: 20071012
  Receipt Date: 20071001
  Transmission Date: 20080405
  Serious: Yes (Hospitalization)
  Sender: FDA-Public Use
  Company Number: WAES 0709PHL00015

PATIENT
  Age: 58 Year
  Sex: Male

DRUGS (6)
  1. COZAAR [Suspect]
     Indication: CARDIAC FAILURE CONGESTIVE
     Dates: start: 20050329, end: 20070910
  2. FUROSEMIDE [Suspect]
     Indication: OEDEMA
     Dosage: 40 MG/PO
     Route: 048
     Dates: start: 20060929, end: 20070910
  3. ALLOPURINOL [Concomitant]
  4. CYANOCOBALAMIN (+) PYRIDOXINE (+) THIAMI [Concomitant]
  5. DIGOXIN [Concomitant]
  6. FERROUS FUMARATE/FOLIC ACID [Concomitant]

REACTIONS (8)
  - AORTIC ARTERIOSCLEROSIS [None]
  - BUNDLE BRANCH BLOCK RIGHT [None]
  - INFECTION [None]
  - ORAL INTAKE REDUCED [None]
  - PNEUMONIA PRIMARY ATYPICAL [None]
  - RENAL FAILURE ACUTE [None]
  - SINUS TACHYCARDIA [None]
  - SUPRAVENTRICULAR EXTRASYSTOLES [None]
